FAERS Safety Report 25068733 (Version 2)
Quarter: 2025Q2

REPORT INFORMATION
  Report Type: Report from Study
  Country: US (occurrence: US)
  Receive Date: 20250312
  Receipt Date: 20250421
  Transmission Date: 20250716
  Serious: Yes (Hospitalization, Other)
  Sender: ALEXION PHARMACEUTICALS
  Company Number: US-AstraZeneca-CH-00818023A

PATIENT
  Age: 60 Year
  Weight: 105.21 kg

DRUGS (2)
  1. DAPAGLIFLOZIN [Suspect]
     Active Substance: DAPAGLIFLOZIN
  2. BUDESONIDE [Concomitant]
     Active Substance: BUDESONIDE
     Route: 065

REACTIONS (14)
  - Acute respiratory failure [Recovered/Resolved]
  - Influenza A virus test positive [Unknown]
  - Chronic obstructive pulmonary disease [Unknown]
  - Dyspnoea [Unknown]
  - Musculoskeletal chest pain [Unknown]
  - Chills [Unknown]
  - Tachycardia [Unknown]
  - Sinus tachycardia [Unknown]
  - Defect conduction intraventricular [Unknown]
  - Myocardial infarction [Unknown]
  - Type 2 diabetes mellitus [Unknown]
  - Nicotine dependence [Unknown]
  - Rales [Unknown]
  - Hypoxia [Unknown]
